FAERS Safety Report 14916852 (Version 2)
Quarter: 2018Q3

REPORT INFORMATION
  Report Type: Report from Study
  Country: US (occurrence: US)
  Receive Date: 20180520
  Receipt Date: 20180705
  Transmission Date: 20181010
  Serious: No
  Sender: FDA-Public Use
  Company Number: US-UNITED THERAPEUTICS-UNT-2018-006876

PATIENT
  Sex: Female

DRUGS (2)
  1. TREPROSTINIL SODIUM (SQ) [Suspect]
     Active Substance: TREPROSTINIL SODIUM
     Dosage: 0.039 ?G/KG, CONTINUING
     Route: 058
  2. TREPROSTINIL SODIUM (SQ) [Suspect]
     Active Substance: TREPROSTINIL SODIUM
     Indication: PULMONARY ARTERIAL HYPERTENSION
     Dosage: 0.0396 ?G/KG, CONTINUING
     Route: 058
     Dates: start: 20171122

REACTIONS (10)
  - Nausea [Unknown]
  - Vomiting [Unknown]
  - Pain in jaw [Recovering/Resolving]
  - Infusion site pain [Unknown]
  - Pain in extremity [Recovering/Resolving]
  - Gastric ulcer [Unknown]
  - Arthralgia [Recovering/Resolving]
  - Headache [Unknown]
  - Diarrhoea [Unknown]
  - Restlessness [Unknown]
